FAERS Safety Report 19879776 (Version 2)
Quarter: 2021Q4

REPORT INFORMATION
  Report Type: Spontaneous
  Country: MX (occurrence: MX)
  Receive Date: 20210924
  Receipt Date: 20211021
  Transmission Date: 20220303
  Serious: Yes (Life-Threatening, Other)
  Sender: FDA-Public Use
  Company Number: MX-ALVOGEN-2021-ALVOGEN-117577

PATIENT
  Age: 8 Year
  Sex: Male
  Weight: 25 kg

DRUGS (5)
  1. TENORMIN [Suspect]
     Active Substance: ATENOLOL
     Indication: Product used for unknown indication
     Route: 048
     Dates: start: 20200216
  2. BECLOMETHASONE DIPROPIONATE\FORMOTEROL FUMARATE [Concomitant]
     Active Substance: BECLOMETHASONE DIPROPIONATE\FORMOTEROL FUMARATE
     Indication: Asthma
     Dosage: 2 SHOTS EVERY 24 HOURS
  3. SOMATROPIN [Concomitant]
     Active Substance: SOMATROPIN
     Indication: Ill-defined disorder
     Dosage: 10 MG / 1.5 ML SOLUTION SUBCUTANEOUSLY 1 MG ONCE A DAY
     Dates: start: 20210901
  4. LEVOCETIRIZINE DIHYDROCHLORIDE [Concomitant]
     Active Substance: LEVOCETIRIZINE DIHYDROCHLORIDE
     Indication: Hypersensitivity
     Dosage: SUSPENSION OF 5 ML DAILY
  5. ALBUTEROL SULFATE\IPRATROPIUM BROMIDE [Concomitant]
     Active Substance: ALBUTEROL SULFATE\IPRATROPIUM BROMIDE
     Indication: Asthma

REACTIONS (5)
  - Dyspnoea [Recovered/Resolved]
  - Cardiac disorder [Unknown]
  - Wrong technique in product usage process [Unknown]
  - Asphyxia [Unknown]
  - Nervousness [Unknown]

NARRATIVE: CASE EVENT DATE: 20210907
